FAERS Safety Report 8992346 (Version 1)
Quarter: 2012Q4

REPORT INFORMATION
  Report Type: 
  Country: GB (occurrence: GB)
  Receive Date: 20121231
  Receipt Date: 20121231
  Transmission Date: 20130627
  Serious: Yes (Other)
  Sender: FDA-Public Use
  Company Number: GB-JNJFOC-20121213473

PATIENT
  Age: 88 Year
  Sex: Male

DRUGS (12)
  1. XARELTO [Suspect]
     Indication: THROMBOSIS PROPHYLAXIS
     Route: 048
     Dates: start: 20120905, end: 20120919
  2. XARELTO [Suspect]
     Indication: KNEE ARTHROPLASTY
     Route: 048
     Dates: start: 20120905, end: 20120919
  3. AMLODIPINE [Concomitant]
     Route: 065
  4. CODEINE PHOSPHATE [Concomitant]
     Route: 065
  5. FRAGMINE [Concomitant]
     Route: 065
  6. GENTAMYCIN-MP [Concomitant]
     Route: 065
  7. LACTULOSE [Concomitant]
     Route: 065
  8. OXYGEN [Concomitant]
     Route: 065
  9. PANTOPRAZOLE [Concomitant]
     Route: 065
  10. PARACETAMOL [Concomitant]
     Route: 065
  11. RAMIPRIL [Concomitant]
     Route: 065
  12. SENNA [Concomitant]
     Route: 065

REACTIONS (2)
  - Rash maculo-papular [Recovering/Resolving]
  - Inflammation [Unknown]
